FAERS Safety Report 17733998 (Version 1)
Quarter: 2020Q2

REPORT INFORMATION
  Report Type: Spontaneous
  Country: GB (occurrence: GB)
  Receive Date: 20200501
  Receipt Date: 20200501
  Transmission Date: 20200714
  Serious: Yes (Other)
  Sender: FDA-Public Use
  Company Number: GB-PFIZER INC-2020145710

PATIENT
  Age: 28 Year
  Sex: Female

DRUGS (1)
  1. DOSTINEX [Suspect]
     Active Substance: CABERGOLINE
     Indication: ACROMEGALY
     Dosage: 0.5 MG, WEEKLY
     Dates: start: 201912

REACTIONS (12)
  - Disease progression [Unknown]
  - Off label use [Unknown]
  - Orthostatic hypotension [Unknown]
  - Product use in unapproved indication [Unknown]
  - Dizziness [Recovering/Resolving]
  - Drug effective for unapproved indication [Unknown]
  - Feeling abnormal [Recovering/Resolving]
  - Hangover [Recovering/Resolving]
  - Temperature regulation disorder [Recovering/Resolving]
  - Somnolence [Recovering/Resolving]
  - Acromegaly [Unknown]
  - Stress [Recovering/Resolving]

NARRATIVE: CASE EVENT DATE: 2019
